FAERS Safety Report 5520702-3 (Version None)
Quarter: 2007Q4

REPORT INFORMATION
  Report Type: 
  Country: None (occurrence: None)
  Receive Date: 20071119
  Receipt Date: 20071106
  Transmission Date: 20080405
  Serious: Yes (Hospitalization)
  Sender: FDA-Public Use
  Company Number: FR-PFIZER INC-2007094324

PATIENT
  Sex: Female
  Weight: 58 kg

DRUGS (6)
  1. SUTENT [Suspect]
     Indication: THYROID CANCER
  2. VENLAFAXIINE HCL [Concomitant]
  3. ANETHOLE TRITHIONE [Concomitant]
  4. ALPRAZOLAM [Concomitant]
  5. LANSOPRAZOLE [Concomitant]
  6. MORPHINE SULFATE [Concomitant]

REACTIONS (1)
  - GENERAL PHYSICAL HEALTH DETERIORATION [None]
